FAERS Safety Report 24676635 (Version 1)
Quarter: 2024Q4

REPORT INFORMATION
  Report Type: Report from Study
  Country: BR (occurrence: BR)
  Receive Date: 20241128
  Receipt Date: 20241128
  Transmission Date: 20250115
  Serious: Yes (Hospitalization, Disabling, Other)
  Sender: ABBVIE
  Company Number: BR-ABBVIE-6018366

PATIENT
  Age: 56 Year
  Sex: Male
  Weight: 42 kg

DRUGS (1)
  1. SKYRIZI [Suspect]
     Active Substance: RISANKIZUMAB-RZAA
     Indication: Psoriasis
     Route: 058

REACTIONS (9)
  - Lung disorder [Recovered/Resolved]
  - Prostatic disorder [Recovering/Resolving]
  - Psoriasis [Unknown]
  - Pneumonia [Recovered/Resolved]
  - Scab [Recovering/Resolving]
  - Gait inability [Not Recovered/Not Resolved]
  - Endotracheal intubation [Unknown]
  - Enteral nutrition [Unknown]
  - Bladder catheterisation [Unknown]

NARRATIVE: CASE EVENT DATE: 20240101
